FAERS Safety Report 17376079 (Version 3)
Quarter: 2020Q1

REPORT INFORMATION
  Report Type: Spontaneous
  Country: US (occurrence: US)
  Receive Date: 20200206
  Receipt Date: 20200214
  Transmission Date: 20200409
  Serious: Yes (Life-Threatening)
  Sender: FDA-Public Use
  Company Number: US-CHIESI USA, INC.-US-2020CHI000072

PATIENT

DRUGS (1)
  1. RETAVASE [Suspect]
     Active Substance: RETEPLASE
     Indication: ACUTE MYOCARDIAL INFARCTION
     Dosage: UNK, UNK, UNK
     Route: 065
     Dates: start: 20200128

REACTIONS (3)
  - Inappropriate schedule of product administration [Unknown]
  - Pain [Unknown]
  - Coronary artery occlusion [Unknown]

NARRATIVE: CASE EVENT DATE: 20200128
